FAERS Safety Report 4642779-X (Version None)
Quarter: 2005Q2

REPORT INFORMATION
  Report Type: 
  Country: None (occurrence: None)
  Receive Date: 20050420
  Receipt Date: 20050405
  Transmission Date: 20051028
  Serious: Yes (Hospitalization)
  Sender: FDA-Public Use
  Company Number: JP_050406299

PATIENT
  Age: 71 Year
  Sex: Female

DRUGS (3)
  1. EVISTA [Suspect]
     Indication: OSTEOPOROSIS
     Dosage: 60 MG/1 DAY
     Dates: start: 20050302, end: 20050325
  2. LOXONIN (LOXOPROFEN SODIUM) [Concomitant]
  3. MARZULENE S [Concomitant]

REACTIONS (1)
  - GASTRIC ULCER [None]
